FAERS Safety Report 17797941 (Version 1)
Quarter: 2020Q2

REPORT INFORMATION
  Report Type: Spontaneous
  Country: US (occurrence: US)
  Receive Date: 20200518
  Receipt Date: 20200518
  Transmission Date: 20200714
  Serious: No
  Sender: FDA-Public Use
  Company Number: US-PFIZER INC-2020195736

PATIENT
  Sex: Female

DRUGS (1)
  1. SUTENT [Suspect]
     Active Substance: SUNITINIB MALATE
     Dosage: 50 MG, CYCLIC (14 DAYS ON, THEN OFF)

REACTIONS (6)
  - Nasal disorder [Unknown]
  - Limb discomfort [Unknown]
  - Peripheral swelling [Unknown]
  - Eyelid oedema [Unknown]
  - Thermal burn [Unknown]
  - Swelling face [Unknown]
